FAERS Safety Report 10479666 (Version 1)
Quarter: 2014Q3

REPORT INFORMATION
  Report Type: Report from Study
  Country: US (occurrence: US)
  Receive Date: 20140927
  Receipt Date: 20140927
  Transmission Date: 20150326
  Serious: Yes (Hospitalization)
  Sender: FDA-Public Use
  Company Number: US-ABBVIE-14K-163-1288271-00

PATIENT
  Age: 49 Year
  Sex: Female
  Weight: 74.91 kg

DRUGS (9)
  1. ENTOCORT [Suspect]
     Active Substance: BUDESONIDE
     Indication: PRODUCT USED FOR UNKNOWN INDICATION
     Route: 048
     Dates: start: 2014
  2. ENTOCORT [Suspect]
     Active Substance: BUDESONIDE
     Route: 048
     Dates: start: 2014
  3. VITAMIN B12 [Concomitant]
     Active Substance: CYANOCOBALAMIN
     Indication: PRODUCT USED FOR UNKNOWN INDICATION
  4. HUMIRA [Suspect]
     Active Substance: ADALIMUMAB
     Indication: CROHN^S DISEASE
     Dates: start: 2011
  5. HUMIRA [Suspect]
     Active Substance: ADALIMUMAB
  6. FISH OIL [Concomitant]
     Active Substance: FISH OIL
     Indication: PRODUCT USED FOR UNKNOWN INDICATION
  7. MULTIVITAMIN [Concomitant]
     Active Substance: VITAMINS
     Indication: PRODUCT USED FOR UNKNOWN INDICATION
     Dosage: FOR WOMEN OVER 50
  8. ENTOCORT [Suspect]
     Active Substance: BUDESONIDE
     Route: 048
     Dates: start: 2014
  9. VITAMINS [Concomitant]
     Active Substance: VITAMINS
     Indication: PRODUCT USED FOR UNKNOWN INDICATION

REACTIONS (8)
  - Drug ineffective [Unknown]
  - Intestinal obstruction [Recovered/Resolved]
  - Therapeutic response changed [Recovering/Resolving]
  - Drug effect decreased [Not Recovered/Not Resolved]
  - Rosacea [Recovering/Resolving]
  - Rash macular [Recovering/Resolving]
  - Hot flush [Unknown]
  - Acne [Recovering/Resolving]

NARRATIVE: CASE EVENT DATE: 2013
